FAERS Safety Report 14016845 (Version 1)
Quarter: 2017Q3

REPORT INFORMATION
  Report Type: Spontaneous
  Country: FR (occurrence: FR)
  Receive Date: 20170927
  Receipt Date: 20170927
  Transmission Date: 20171128
  Serious: Yes (Other)
  Sender: FDA-Public Use
  Company Number: FR-MERCK KGAA-2027932

PATIENT
  Age: 68 Year
  Sex: Female

DRUGS (3)
  1. NOVOTHYROX [Suspect]
     Active Substance: LEVOTHYROXINE SODIUM
     Indication: HYPOTHYROIDISM
  2. NOVOTHYROX [Suspect]
     Active Substance: LEVOTHYROXINE SODIUM
  3. TIMOPTOL [Concomitant]
     Active Substance: TIMOLOL

REACTIONS (10)
  - Nausea [None]
  - Irritability [None]
  - Dyskinesia [None]
  - Arrhythmia [None]
  - Syncope [None]
  - Urinary tract infection [None]
  - Chest pain [None]
  - Nightmare [None]
  - Vertigo [None]
  - Gastrointestinal disorder [None]

NARRATIVE: CASE EVENT DATE: 201708
